FAERS Safety Report 25971238 (Version 4)
Quarter: 2025Q4

REPORT INFORMATION
  Report Type: Report from Study
  Country: US (occurrence: US)
  Receive Date: 20251028
  Receipt Date: 20251124
  Transmission Date: 20260118
  Serious: No
  Sender: MALLINCKRODT
  Company Number: US-MALLINCKRODT-MNK202506624

PATIENT
  Age: 71 Year
  Sex: Female
  Weight: 119 kg

DRUGS (2)
  1. CORTICOTROPIN [Suspect]
     Active Substance: CORTICOTROPIN
     Indication: Rheumatoid arthritis
     Dosage: 80 UNITS
     Route: 058
     Dates: start: 20250117
  2. PREDNISONE [Concomitant]
     Active Substance: PREDNISONE
     Dosage: UNKNOWN

REACTIONS (10)
  - Sinus disorder [Unknown]
  - Sneezing [Unknown]
  - Sciatica [Unknown]
  - Flushing [Unknown]
  - Night sweats [Unknown]
  - Dysphonia [Unknown]
  - Fall [Unknown]
  - Contusion [Unknown]
  - Coccydynia [Unknown]
  - Headache [Unknown]

NARRATIVE: CASE EVENT DATE: 20250101
